FAERS Safety Report 23547298 (Version 2)
Quarter: 2025Q2

REPORT INFORMATION
  Report Type: Report from Study
  Country: IT (occurrence: IT)
  Receive Date: 20240221
  Receipt Date: 20250426
  Transmission Date: 20250716
  Serious: Yes (Other)
  Sender: AUROBINDO
  Company Number: IT-SUN PHARMACEUTICAL INDUSTRIES LTD-2023R1-377584

PATIENT
  Age: 74 Year
  Sex: Male

DRUGS (2)
  1. AZACITIDINE [Suspect]
     Active Substance: AZACITIDINE
     Indication: Chemotherapy
     Route: 065
  2. VENETOCLAX [Suspect]
     Active Substance: VENETOCLAX
     Indication: Chemotherapy
     Route: 065

REACTIONS (1)
  - Acute myeloid leukaemia [Unknown]
